FAERS Safety Report 11062005 (Version 1)
Quarter: 2015Q2

REPORT INFORMATION
  Report Type: Spontaneous
  Country: US (occurrence: US)
  Receive Date: 20150424
  Receipt Date: 20150424
  Transmission Date: 20150821
  Serious: Yes (Death, Other)
  Sender: FDA-Public Use
  Company Number: US-JNJFOC-20150314611

PATIENT

DRUGS (5)
  1. DACARBAZINE. [Suspect]
     Active Substance: DACARBAZINE
     Indication: SOFT TISSUE SARCOMA
     Route: 065
  2. MESNA. [Suspect]
     Active Substance: MESNA
     Indication: SOFT TISSUE SARCOMA
     Route: 065
  3. IFOSFAMIDE. [Suspect]
     Active Substance: IFOSFAMIDE
     Indication: SOFT TISSUE SARCOMA
     Route: 065
  4. DOXORUBICIN [Suspect]
     Active Substance: DOXORUBICIN
     Indication: SOFT TISSUE SARCOMA
     Route: 042
  5. RADIOTHERAPY [Suspect]
     Active Substance: RADIATION THERAPY
     Indication: SOFT TISSUE SARCOMA
     Route: 065

REACTIONS (27)
  - Sepsis [Unknown]
  - Infection [Unknown]
  - Skin toxicity [Unknown]
  - Vomiting [Unknown]
  - Product use issue [Unknown]
  - Mucosal toxicity [Unknown]
  - Pain [Unknown]
  - Urinary bladder toxicity [Unknown]
  - Leukopenia [Unknown]
  - Neurotoxicity [Unknown]
  - Angiopathy [Unknown]
  - Fracture [Unknown]
  - Death [Fatal]
  - Toxicity to various agents [Fatal]
  - Haematotoxicity [Unknown]
  - Pulmonary toxicity [Unknown]
  - Wound infection [Unknown]
  - Arthropathy [Unknown]
  - Diarrhoea [Unknown]
  - Nausea [Unknown]
  - Cardiotoxicity [Unknown]
  - Endocrine toxicity [Unknown]
  - Drug effect decreased [Unknown]
  - Myeloid leukaemia [Fatal]
  - Hepatotoxicity [Unknown]
  - Gastrointestinal toxicity [Unknown]
  - Pyrexia [Unknown]
